FAERS Safety Report 12266997 (Version 5)
Quarter: 2019Q2

REPORT INFORMATION
  Report Type: Spontaneous
  Country: US (occurrence: US)
  Receive Date: 20160414
  Receipt Date: 20190429
  Transmission Date: 20190711
  Serious: No
  Sender: FDA-Public Use
  Company Number: US-PFIZER INC-2016167761

PATIENT
  Age: 77 Year
  Sex: Female
  Weight: 80.27 kg

DRUGS (2)
  1. PREMPRO [Suspect]
     Active Substance: ESTROGENS, CONJUGATED\MEDROXYPROGESTERONE ACETATE
     Dosage: UNK (TAKE IT FOR 28 DAYS AND THEN SKIP 2 DAYS)
  2. PREMPRO [Suspect]
     Active Substance: ESTROGENS, CONJUGATED\MEDROXYPROGESTERONE ACETATE
     Indication: OSTEOPENIA
     Dosage: 0.3-1.5 MG TABLET, 1X/DAY
     Route: 048

REACTIONS (3)
  - Hypoacusis [Unknown]
  - Product use issue [Unknown]
  - Malaise [Unknown]
